FAERS Safety Report 16641909 (Version 1)
Quarter: 2019Q3

REPORT INFORMATION
  Report Type: Spontaneous
  Country: US (occurrence: US)
  Receive Date: 20190729
  Receipt Date: 20190729
  Transmission Date: 20191004
  Serious: Yes (Other)
  Sender: FDA-Public Use
  Company Number: US-PFIZER INC-2019318263

PATIENT
  Age: 60 Year
  Sex: Female
  Weight: 92 kg

DRUGS (3)
  1. LYRICA [Suspect]
     Active Substance: PREGABALIN
     Indication: INTERVERTEBRAL DISC PROTRUSION
     Dosage: 100 MG, 2X/DAY
     Dates: start: 2014
  2. LYRICA [Suspect]
     Active Substance: PREGABALIN
     Indication: FIBROMYALGIA
     Dosage: 100 MG, 1X/DAY
  3. LYRICA [Suspect]
     Active Substance: PREGABALIN
     Indication: EXOSTOSIS

REACTIONS (12)
  - Pulmonary oedema [Unknown]
  - Intentional product use issue [Unknown]
  - Fall [Unknown]
  - Weight decreased [Unknown]
  - Diabetes mellitus [Unknown]
  - Osteoporosis [Unknown]
  - Product dispensing error [Unknown]
  - Pain in extremity [Unknown]
  - Drug intolerance [Unknown]
  - Balance disorder [Unknown]
  - Heart rate increased [Unknown]
  - Body height decreased [Unknown]

NARRATIVE: CASE EVENT DATE: 2014
